FAERS Safety Report 9152834 (Version 1)
Quarter: 2013Q1

REPORT INFORMATION
  Report Type: Spontaneous
  Country: CH (occurrence: CH)
  Receive Date: 20130309
  Receipt Date: 20130309
  Transmission Date: 20140127
  Serious: Yes (Death)
  Sender: FDA-Public Use
  Company Number: CH-UCBSA-079946

PATIENT
  Age: 59 Year
  Sex: Male

DRUGS (2)
  1. VIMAPT [Suspect]
     Indication: EPILEPSY
     Route: 048
     Dates: start: 2010, end: 20121027
  2. CO-ENATEC [Suspect]
     Route: 048
     Dates: end: 20121115

REACTIONS (6)
  - Acute hepatic failure [Fatal]
  - Hepatitis [Fatal]
  - Hepatic cirrhosis [Fatal]
  - Jaundice [Fatal]
  - Ascites [Fatal]
  - Nausea [Fatal]
